FAERS Safety Report 4437569-7 (Version None)
Quarter: 2004Q3

REPORT INFORMATION
  Report Type: 
  Country: None (occurrence: None)
  Receive Date: 20040830
  Receipt Date: 20040830
  Transmission Date: 20050211
  Serious: Yes (Other)
  Sender: FDA-Public Use
  Company Number: None

PATIENT
  Sex: Male
  Weight: 73.5 kg

DRUGS (11)
  1. FOSPHENYTOIN SODIUM [Suspect]
     Indication: COMPLEX PARTIAL SEIZURES
     Dosage: 1000 MG TIMES ONE INTRAVENOUS
     Route: 042
     Dates: start: 20030417, end: 20030814
  2. TACROLIMUS [Concomitant]
  3. MMF [Concomitant]
  4. PREDNISONE [Concomitant]
  5. AMLODIPINE [Concomitant]
  6. BACTRIM [Concomitant]
  7. GANCYCLOVIR [Concomitant]
  8. CACO [Concomitant]
  9. CAACETATE [Concomitant]
  10. NAHCO3 [Concomitant]
  11. ALLOPURINOL [Concomitant]

REACTIONS (1)
  - HYPERPHOSPHATAEMIA [None]
